FAERS Safety Report 4747315-5 (Version None)
Quarter: 2005Q3

REPORT INFORMATION
  Report Type: 
  Country: None (occurrence: None)
  Receive Date: 20050816
  Receipt Date: 20050801
  Transmission Date: 20060218
  Serious: Yes (Other)
  Sender: FDA-Public Use
  Company Number: 216646

PATIENT
  Sex: 0

DRUGS (4)
  1. AVASTIN [Suspect]
  2. OXALIPLATIN (OXALIPLATIN) [Concomitant]
  3. LEUCOVORIN (LEUCOVORN CALCIUM) [Concomitant]
  4. FLUOROURACIL [Concomitant]

REACTIONS (2)
  - DIALYSIS [None]
  - RENAL FAILURE ACUTE [None]
